FAERS Safety Report 23054515 (Version 1)
Quarter: 2023Q4

REPORT INFORMATION
  Report Type: Spontaneous
  Country: US (occurrence: None)
  Receive Date: 20231010
  Receipt Date: 20231010
  Transmission Date: 20240110
  Serious: Yes (Life-Threatening, Disabling, Other)
  Sender: FDA-Public Use
  Company Number: None

PATIENT
  Age: 28 Year
  Sex: Male
  Weight: 81 kg

DRUGS (2)
  1. COMPLEMENTARY SUPPLEMENT, OTHER [Suspect]
     Active Substance: COMPLEMENTARY SUPPLEMENT, OTHER
     Indication: Hypersensitivity
     Dosage: FREQUENCY : AS NEEDED;?OTHER ROUTE : INTRANASALLY;?
     Route: 050
     Dates: start: 20230908, end: 20230917
  2. COMPLEMENTARY SUPPLEMENT, OTHER [Suspect]
     Active Substance: COMPLEMENTARY SUPPLEMENT, OTHER
     Indication: Epistaxis

REACTIONS (3)
  - Sinusitis [None]
  - Upper respiratory tract infection [None]
  - Cough [None]

NARRATIVE: CASE EVENT DATE: 20230915
